FAERS Safety Report 5250018-4 (Version None)
Quarter: 2007Q1

REPORT INFORMATION
  Report Type: 
  Country: None (occurrence: None)
  Receive Date: 20070228
  Receipt Date: 20060125
  Transmission Date: 20070707
  Serious: No
  Sender: FDA-Public Use
  Company Number: US-GLAXOSMITHKLINE-A0590883A

PATIENT
  Age: 62 Year
  Sex: Female

DRUGS (8)
  1. LAMICTAL [Suspect]
     Indication: BIPOLAR DISORDER
     Dosage: 150MG VARIABLE DOSE
     Route: 048
     Dates: start: 20030101
  2. CLONOPIN [Concomitant]
  3. EFFEXOR [Concomitant]
  4. PRAVACHOL [Concomitant]
  5. SYNTHROID [Concomitant]
  6. TRAMADOL HCL [Concomitant]
  7. FLONASE [Concomitant]
  8. ADVAIR DISKUS 100/50 [Concomitant]

REACTIONS (2)
  - HEAT RASH [None]
  - RASH [None]
